APPROVED DRUG PRODUCT: CLOBETASOL PROPIONATE
Active Ingredient: CLOBETASOL PROPIONATE
Strength: 0.05%
Dosage Form/Route: CREAM;TOPICAL
Application: A210208 | Product #001 | TE Code: AB1
Applicant: LUPIN LTD
Approved: Jan 30, 2018 | RLD: No | RS: No | Type: RX